FAERS Safety Report 15800985 (Version 1)
Quarter: 2019Q1

REPORT INFORMATION
  Report Type: Spontaneous
  Country: US (occurrence: US)
  Receive Date: 20190109
  Receipt Date: 20190109
  Transmission Date: 20190417
  Serious: No
  Sender: FDA-Public Use
  Company Number: US-ZYDUS-019517

PATIENT
  Sex: Male

DRUGS (1)
  1. INDOMETACIN [Suspect]
     Active Substance: INDOMETHACIN
     Indication: PAIN

REACTIONS (1)
  - Internal haemorrhage [Unknown]
